FAERS Safety Report 6903387-0 (Version None)
Quarter: 2010Q3

REPORT INFORMATION
  Report Type: 
  Country: None (occurrence: None)
  Receive Date: 20100803
  Receipt Date: 20080930
  Transmission Date: 20110219
  Serious: No
  Sender: FDA-Public Use
  Company Number: US-PFIZER INC-2008051494

PATIENT
  Sex: Male
  Weight: 62.7 kg

DRUGS (4)
  1. LYRICA [Suspect]
     Indication: NEUROPATHY PERIPHERAL
     Route: 048
     Dates: start: 20070101
  2. VITAMIN D [Concomitant]
  3. PEPCID [Concomitant]
  4. ASTELIN [Concomitant]

REACTIONS (3)
  - BLOOD IMMUNOGLOBULIN M INCREASED [None]
  - EYE PAIN [None]
  - VISION BLURRED [None]
